FAERS Safety Report 9495408 (Version 3)
Quarter: 2013Q3

REPORT INFORMATION
  Report Type: Report from Study
  Country: PT (occurrence: PT)
  Receive Date: 20130903
  Receipt Date: 20130912
  Transmission Date: 20140515
  Serious: Yes (Death, Hospitalization, Disabling)
  Sender: FDA-Public Use
  Company Number: PT-TEVA-429676USA

PATIENT
  Age: 73 Year
  Sex: Male
  Weight: 50 kg

DRUGS (7)
  1. BENDAMUSTINE [Suspect]
     Indication: CHRONIC LYMPHOCYTIC LEUKAEMIA
     Dosage: UID/QD
     Route: 042
     Dates: start: 20130730, end: 20130731
  2. RITUXIMAB [Suspect]
     Indication: CHRONIC LYMPHOCYTIC LEUKAEMIA
     Dosage: UNKNOWN/D
     Route: 042
     Dates: start: 20130729
  3. IBRUTINIB [Suspect]
     Indication: CHRONIC LYMPHOCYTIC LEUKAEMIA
     Dosage: 420 MILLIGRAM DAILY;
     Route: 048
     Dates: start: 20130731, end: 20130805
  4. XILONIBSA [Concomitant]
     Dosage: 4 DOSAGE FORMS DAILY;
  5. ALLOPURINOL [Concomitant]
     Dosage: 300 MILLIGRAM DAILY;
  6. SUCRALFATE [Concomitant]
     Dosage: 1 GRAM DAILY;
  7. INSULIN [Concomitant]

REACTIONS (2)
  - Dysphagia [Not Recovered/Not Resolved]
  - Sepsis [Fatal]
